FAERS Safety Report 6832635-0 (Version None)
Quarter: 2010Q3

REPORT INFORMATION
  Report Type: 
  Country: None (occurrence: None)
  Receive Date: 20100712
  Receipt Date: 20070319
  Transmission Date: 20110219
  Serious: Yes (Other)
  Sender: FDA-Public Use
  Company Number: US-PFIZER INC-2007021047

PATIENT
  Sex: Female
  Weight: 61.2 kg

DRUGS (7)
  1. CHANTIX [Suspect]
     Indication: EX-TOBACCO USER
     Dates: start: 20070226
  2. GLUCOPHAGE [Concomitant]
  3. LANTUS [Concomitant]
  4. PROZAC [Concomitant]
  5. NEXIUM [Concomitant]
  6. CRESTOR [Concomitant]
  7. VERAPAMIL HYDROCHLORIDE [Concomitant]

REACTIONS (8)
  - DECREASED APPETITE [None]
  - DISCOMFORT [None]
  - DYSPEPSIA [None]
  - HEADACHE [None]
  - HYPOGLYCAEMIA [None]
  - NAUSEA [None]
  - NICOTINE DEPENDENCE [None]
  - POLLAKIURIA [None]
